FAERS Safety Report 8394647-8 (Version None)
Quarter: 2012Q2

REPORT INFORMATION
  Report Type: 
  Country: None (occurrence: None)
  Receive Date: 20120525
  Receipt Date: 20120525
  Transmission Date: 20120825
  Serious: Yes (Other)
  Sender: FDA-Public Use
  Company Number: None

PATIENT

DRUGS (1)
  1. SIMVASTATIN [Suspect]
     Indication: HYPERLIPIDAEMIA
     Dates: start: 20050310, end: 20120301

REACTIONS (9)
  - DRY SKIN [None]
  - CARPAL TUNNEL SYNDROME [None]
  - SKIN HAEMORRHAGE [None]
  - IMMUNE SYSTEM DISORDER [None]
  - HEADACHE [None]
  - VITILIGO [None]
  - MYALGIA [None]
  - ARTHRALGIA [None]
  - GAIT DISTURBANCE [None]
